FAERS Safety Report 6107525-1 (Version None)
Quarter: 2009Q1

REPORT INFORMATION
  Report Type: 
  Country: None (occurrence: None)
  Receive Date: 20090305
  Receipt Date: 20090224
  Transmission Date: 20090719
  Serious: Yes (Hospitalization)
  Sender: FDA-Public Use
  Company Number: CHPA2009US05361

PATIENT
  Age: 42 Month
  Sex: Female

DRUGS (1)
  1. COMTREX UNKNOWN (NCH) (UNKNOWN) UNKNOWN [Suspect]
     Indication: INCORRECT DOSE ADMINISTERED
     Dosage: 65 ML,ONCE/SINGLE,ORAL
     Route: 048
     Dates: start: 20090201, end: 20090201

REACTIONS (5)
  - ACCIDENTAL DRUG INTAKE BY CHILD [None]
  - ACCIDENTAL OVERDOSE [None]
  - CORRECTIVE LENS USER [None]
  - PSYCHOMOTOR HYPERACTIVITY [None]
  - STRABISMUS [None]
